FAERS Safety Report 10616654 (Version 1)
Quarter: 2014Q4

REPORT INFORMATION
  Report Type: Spontaneous
  Country: US (occurrence: None)
  Receive Date: 20141126
  Receipt Date: 20141126
  Transmission Date: 20150529
  Serious: Yes (Hospitalization)
  Sender: FDA-Public Use
  Company Number: None

PATIENT
  Age: 71 Year
  Sex: Male
  Weight: 99.79 kg

DRUGS (1)
  1. TASIGNA [Suspect]
     Active Substance: NILOTINIB
     Indication: CHRONIC MYELOID LEUKAEMIA
     Route: 048
     Dates: start: 201008

REACTIONS (5)
  - Memory impairment [None]
  - Inappropriate schedule of drug administration [None]
  - Asthenia [None]
  - Fall [None]
  - Drug dose omission [None]

NARRATIVE: CASE EVENT DATE: 20141124
